FAERS Safety Report 9387095 (Version 3)
Quarter: 2014Q2

REPORT INFORMATION
  Report Type: Spontaneous
  Country: IT (occurrence: None)
  Receive Date: 20130702
  Receipt Date: 20140612
  Transmission Date: 20141212
  Serious: Yes (Other)
  Sender: FDA-Public Use
  Company Number: AUR-APL-2013-05374

PATIENT
  Age: 48 Year
  Sex: Male

DRUGS (2)
  1. AMOXICILLINA TABLETS 1G (AMOXICILLIN) TABLET, 1G [Suspect]
     Indication: PHARYNGITIS
     Dosage: (1 DF, TOTAL)
     Route: 048
     Dates: start: 20130426, end: 20130426
  2. ANTRA [Concomitant]

REACTIONS (4)
  - Lip oedema [None]
  - Palatal oedema [None]
  - Vomiting [None]
  - Pyrexia [None]
